FAERS Safety Report 9928521 (Version 2)
Quarter: 2014Q1

REPORT INFORMATION
  Report Type: Spontaneous
  Country: US (occurrence: US)
  Receive Date: 20140227
  Receipt Date: 20140317
  Transmission Date: 20141002
  Serious: Yes (Other)
  Sender: FDA-Public Use
  Company Number: US-BAYER-2014-029297

PATIENT
  Age: 44 Year
  Sex: Female
  Weight: 48.98 kg

DRUGS (4)
  1. MIRENA [Suspect]
     Indication: CONTRACEPTION
     Dosage: 20 MCG/24HR, CONT
     Route: 015
     Dates: start: 20080417, end: 20080602
  2. MIRENA [Suspect]
     Indication: MENORRHAGIA
  3. IMITREX [Concomitant]
  4. MIGRANAL [Concomitant]

REACTIONS (6)
  - Uterine perforation [None]
  - Genital haemorrhage [None]
  - Dysstasia [None]
  - Pain [None]
  - Injury [None]
  - Emotional distress [None]
